FAERS Safety Report 8023054-2 (Version None)
Quarter: 2012Q1

REPORT INFORMATION
  Report Type: 
  Country: None (occurrence: None)
  Receive Date: 20120104
  Receipt Date: 20111229
  Transmission Date: 20120608
  Serious: Yes (Hospitalization)
  Sender: FDA-Public Use
  Company Number: BR-PFIZER INC-2011316881

PATIENT
  Age: 87 Year
  Sex: Male

DRUGS (3)
  1. LIPITOR [Suspect]
     Indication: BLOOD CHOLESTEROL
     Dosage: 40 MG (ONE TABLET), 1X/DAY
     Route: 048
     Dates: start: 20100601
  2. GALVUS [Concomitant]
     Indication: DIABETES MELLITUS
  3. CARVEDILOL [Concomitant]
     Indication: CARDIAC DISORDER
     Dosage: ONE TABLET DAILY

REACTIONS (1)
  - MYOCARDIAL INFARCTION [None]
